FAERS Safety Report 10035370 (Version 2)
Quarter: 2014Q2

REPORT INFORMATION
  Report Type: Report from Study
  Country: AU (occurrence: AU)
  Receive Date: 20140325
  Receipt Date: 20140404
  Transmission Date: 20141212
  Serious: Yes (Hospitalization)
  Sender: FDA-Public Use
  Company Number: AU-SA-2014SA035978

PATIENT
  Sex: Male

DRUGS (16)
  1. LANTUS SOLOSTAR [Suspect]
     Indication: PRODUCT USED FOR UNKNOWN INDICATION
     Route: 058
     Dates: start: 20120901
  2. LANTUS SOLOSTAR [Suspect]
     Indication: PRODUCT USED FOR UNKNOWN INDICATION
     Route: 058
     Dates: start: 20140320
  3. ZOLOFT [Concomitant]
  4. TAMSULOSIN [Concomitant]
  5. PERINDOPRIL [Concomitant]
  6. NORVASC [Concomitant]
  7. DITHIAZIDE [Concomitant]
  8. COLOXYL [Concomitant]
  9. MAGNESIUM [Concomitant]
  10. RANITIDINE [Concomitant]
  11. METFORMIN [Concomitant]
  12. LIPITOR [Concomitant]
  13. ENDONE [Concomitant]
     Indication: PROCEDURAL PAIN
  14. NORMISON [Concomitant]
  15. SEROQUEL [Concomitant]
  16. SOLOSTAR [Concomitant]
     Indication: DEVICE THERAPY

REACTIONS (6)
  - Vertigo [Recovered/Resolved with Sequelae]
  - Cerebrovascular accident [Recovered/Resolved with Sequelae]
  - Haemorrhoid operation [Recovered/Resolved with Sequelae]
  - Transient ischaemic attack [Recovered/Resolved with Sequelae]
  - Blood glucose fluctuation [Recovered/Resolved with Sequelae]
  - Disorientation [Unknown]
